FAERS Safety Report 15705143 (Version 1)
Quarter: 2018Q4

REPORT INFORMATION
  Report Type: Spontaneous
  Country: US (occurrence: US)
  Receive Date: 20181210
  Receipt Date: 20181210
  Transmission Date: 20190205
  Serious: Yes (Other)
  Sender: FDA-Public Use
  Company Number: US-PFIZER INC-2018500722

PATIENT
  Age: 2 Year
  Sex: Male

DRUGS (1)
  1. GENOTROPIN [Suspect]
     Active Substance: SOMATROPIN
     Indication: SEPTO-OPTIC DYSPLASIA
     Dosage: 0.7 MG, DAILY
     Dates: start: 20171206

REACTIONS (11)
  - Blood bilirubin decreased [Unknown]
  - Blood calcium increased [Unknown]
  - Blood alkaline phosphatase increased [Unknown]
  - Blood thyroid stimulating hormone decreased [Unknown]
  - Hypoglycaemia [Unknown]
  - Product use in unapproved indication [Unknown]
  - Blood glucose increased [Unknown]
  - Product dose omission [Unknown]
  - Seizure [Unknown]
  - Ear infection [Unknown]
  - Blood prolactin increased [Unknown]

NARRATIVE: CASE EVENT DATE: 20180212
